FAERS Safety Report 25702297 (Version 1)
Quarter: 2025Q3

REPORT INFORMATION
  Report Type: Spontaneous
  Country: MX (occurrence: MX)
  Receive Date: 20250819
  Receipt Date: 20250819
  Transmission Date: 20251020
  Serious: Yes (Death)
  Sender: RARE DISEASE THERAPEUTICS, INC.
  Company Number: MX-Rare Disease Therapeutics, Inc.-2182823

PATIENT
  Age: 39 Year
  Sex: Female

DRUGS (1)
  1. ANAVIP [Suspect]
     Active Substance: PIT VIPER (CROTALINAE) IMMUNE GLOBULIN ANTIVENIN (EQUINE)
     Indication: Arthropod sting
     Dates: start: 20250811, end: 20250811

REACTIONS (3)
  - Product preparation error [Fatal]
  - Anaphylactic reaction [Fatal]
  - Product administration error [Fatal]

NARRATIVE: CASE EVENT DATE: 20250811
